FAERS Safety Report 17444751 (Version 3)
Quarter: 2020Q2

REPORT INFORMATION
  Report Type: Spontaneous
  Country: US (occurrence: US)
  Receive Date: 20200221
  Receipt Date: 20200424
  Transmission Date: 20200713
  Serious: No
  Sender: FDA-Public Use
  Company Number: US-TEVA-2020-US-1188967

PATIENT
  Age: 58 Year
  Sex: Female

DRUGS (7)
  1. DEXTROAMPHETAMINE SACCHARATE/AMPHETAMINE ASPARTATE [Suspect]
     Active Substance: AMPHETAMINE ASPARTATE\DEXTROAMPHETAMINE SACCHARATE
     Indication: ATTENTION DEFICIT HYPERACTIVITY DISORDER
     Dosage: 5 MILLIGRAM DAILY; ONE TABLET PER DAY
     Route: 065
  2. SERTRALINE [Concomitant]
     Active Substance: SERTRALINE HYDROCHLORIDE
     Dosage: DAILY
  3. ANAX [Concomitant]
     Dosage: 2
  4. DEXTROAMPHETAMINE SACCHARATE/AMPHETAMINE ASPARTATE [Suspect]
     Active Substance: AMPHETAMINE ASPARTATE\DEXTROAMPHETAMINE SACCHARATE
     Route: 065
  5. ADDERALL [Concomitant]
     Active Substance: AMPHETAMINE ASPARTATE\AMPHETAMINE SULFATE\DEXTROAMPHETAMINE SACCHARATE\DEXTROAMPHETAMINE SULFATE
  6. ABILIFY [Concomitant]
     Active Substance: ARIPIPRAZOLE
     Dosage: AT BEDTIME
  7. DEXTROAMPHETAMINE SACCHARATE/AMPHETAMINE ASPARTATE [Suspect]
     Active Substance: AMPHETAMINE ASPARTATE\DEXTROAMPHETAMINE SACCHARATE
     Dosage: 10 MILLIGRAM DAILY; TWO  5 MG PILLS PER DAY
     Route: 065

REACTIONS (10)
  - Musculoskeletal stiffness [Unknown]
  - Decreased appetite [Unknown]
  - Drug ineffective [Unknown]
  - Weight decreased [Unknown]
  - Pruritus [Recovered/Resolved]
  - Muscle tightness [Unknown]
  - Urticaria [Recovered/Resolved]
  - Asthenia [Unknown]
  - Candida infection [Recovered/Resolved]
  - Rash [Unknown]
